FAERS Safety Report 5108189-6 (Version None)
Quarter: 2006Q3

REPORT INFORMATION
  Report Type: 
  Country: None (occurrence: None)
  Receive Date: 20060919
  Receipt Date: 20060906
  Transmission Date: 20061208
  Serious: Yes (Hospitalization)
  Sender: FDA-Public Use
  Company Number: CH-ROCHE-462341

PATIENT
  Age: 19 Year
  Sex: Male

DRUGS (3)
  1. FUZEON [Suspect]
     Indication: HIV INFECTION
     Dosage: FORM REPORTED AS VIAL. THE PATIENT RECEIVED INJECTIONS IN BOTH UPPER ARMS.
     Route: 058
     Dates: start: 20050515
  2. REYATAZ [Concomitant]
     Indication: HIV INFECTION
  3. VIDEX [Concomitant]
     Indication: HIV INFECTION

REACTIONS (2)
  - INJECTION SITE HAEMORRHAGE [None]
  - MUSCLE HAEMORRHAGE [None]
